FAERS Safety Report 25655423 (Version 3)
Quarter: 2025Q4

REPORT INFORMATION
  Report Type: Report from Study
  Country: US (occurrence: US)
  Receive Date: 20250807
  Receipt Date: 20251004
  Transmission Date: 20260118
  Serious: Yes (Other)
  Sender: UCB
  Company Number: US-UCBSA-2025040001

PATIENT
  Sex: Male

DRUGS (12)
  1. ROZANOLIXIZUMAB [Suspect]
     Active Substance: ROZANOLIXIZUMAB
     Indication: Myasthenia gravis
     Dosage: UNK, ONCE WEEKLY (QW), FOR 6 WEEKS
     Dates: start: 20250619, end: 2025
  2. IMURAN [Concomitant]
     Active Substance: AZATHIOPRINE
     Indication: Myasthenia gravis
     Dosage: 50 MILLIGRAM, 2X/DAY (BID)
     Route: 048
  3. MESTINON [Concomitant]
     Active Substance: PYRIDOSTIGMINE BROMIDE
     Indication: Myasthenia gravis
     Dosage: 60 MILLIGRAM, 4X/DAY (QID)
     Route: 048
  4. VICTOZA [Concomitant]
     Active Substance: LIRAGLUTIDE
     Indication: Type 2 diabetes mellitus
     Dosage: 1.2 MILLIGRAM, INJECTION
  5. DOXYSINA [Concomitant]
     Indication: Blood pressure measurement
     Dosage: 2 MILLIGRAM, ONCE DAILY (QD)
  6. LISINOPRIL [Concomitant]
     Active Substance: LISINOPRIL
     Indication: Blood pressure measurement
     Dosage: 40 MILLIGRAM, ONCE DAILY (QD)
     Route: 048
  7. BREO ELLIPTA [Concomitant]
     Active Substance: FLUTICASONE FUROATE\VILANTEROL TRIFENATATE
     Indication: Obstructive airways disorder
     Dosage: 100/25 MCG/ACT, ONCE DAILY
     Route: 045
  8. ALBUTEROL [Concomitant]
     Active Substance: ALBUTEROL
     Indication: Lung disorder
     Dosage: 108 MCG/ACT
  9. AMARYL [Concomitant]
     Active Substance: GLIMEPIRIDE
     Indication: Type 2 diabetes mellitus
     Dosage: 4 MILLIGRAM, ONCE DAILY (QD)
     Route: 048
  10. METFORMIN [Concomitant]
     Active Substance: METFORMIN HYDROCHLORIDE
     Indication: Type 2 diabetes mellitus
     Dosage: 500 MILLIGRAM
     Route: 048
  11. ACTOS [Concomitant]
     Active Substance: PIOGLITAZONE HYDROCHLORIDE
     Indication: Type 2 diabetes mellitus
     Dosage: 45 MILLIGRAM, ONCE DAILY (QD)
     Route: 048
  12. NAPROXEN [Concomitant]
     Active Substance: NAPROXEN
     Indication: Type 2 diabetes mellitus
     Dosage: 220 MILLIGRAM, 2X/DAY (BID)
     Route: 048

REACTIONS (9)
  - Myasthenia gravis [Not Recovered/Not Resolved]
  - Insomnia [Recovered/Resolved]
  - Joint stiffness [Recovered/Resolved]
  - Injection site paraesthesia [Recovered/Resolved]
  - Dehydration [Recovered/Resolved]
  - Muscle spasms [Recovered/Resolved]
  - Drug ineffective [Unknown]
  - Inability to afford medication [Unknown]
  - Adverse drug reaction [Unknown]

NARRATIVE: CASE EVENT DATE: 20250101
